FAERS Safety Report 20168510 (Version 1)
Quarter: 2021Q4

REPORT INFORMATION
  Report Type: Spontaneous
  Country: US (occurrence: US)
  Receive Date: 20211210
  Receipt Date: 20211210
  Transmission Date: 20220303
  Serious: Yes (Hospitalization, Other)
  Sender: FDA-Public Use
  Company Number: US-MLMSERVICE-20211125-3236677-1

PATIENT
  Age: 37 Year
  Sex: Female

DRUGS (1)
  1. ACETAMINOPHEN [Suspect]
     Active Substance: ACETAMINOPHEN
     Indication: Product used for unknown indication
     Dosage: 1 GRAM EVERY 3 HOUR (Q 3-4 HOURS FOR 1 WEEK)
     Route: 065

REACTIONS (4)
  - Herpes simplex hepatitis [Unknown]
  - Hepatic necrosis [Unknown]
  - Herpes simplex [Unknown]
  - Drug-induced liver injury [Unknown]
